FAERS Safety Report 4311447-6 (Version None)
Quarter: 2004Q1

REPORT INFORMATION
  Report Type: 
  Country: None (occurrence: None)
  Receive Date: 20040302
  Receipt Date: 20040129
  Transmission Date: 20041129
  Serious: No
  Sender: FDA-Public Use
  Company Number: 200325491BWH

PATIENT
  Age: 72 Year
  Sex: Male
  Weight: 90.7194 kg

DRUGS (9)
  1. LEVITRA [Suspect]
     Indication: ERECTILE DYSFUNCTION
     Dosage: 10 MG, ONCE, ORAL; 10 MG, ONCE, ORAL
     Route: 048
     Dates: start: 20030927
  2. LEVITRA [Suspect]
     Indication: ERECTILE DYSFUNCTION
     Dosage: 10 MG, ONCE, ORAL; 10 MG, ONCE, ORAL
     Route: 048
     Dates: start: 20031001
  3. DIOVAN [Concomitant]
  4. NORVASC [Concomitant]
  5. CELEBREX [Concomitant]
  6. NEURONTIN [Concomitant]
  7. PAXIL [Concomitant]
  8. ALLEGRA [Concomitant]
  9. ASPIRIN [Concomitant]

REACTIONS (4)
  - DIFFICULTY IN WALKING [None]
  - ERECTILE DYSFUNCTION [None]
  - FATIGUE [None]
  - SENSATION OF HEAVINESS [None]
